FAERS Safety Report 9699096 (Version 2)
Quarter: 2013Q4

REPORT INFORMATION
  Report Type: Spontaneous
  Country: US (occurrence: US)
  Receive Date: 20131120
  Receipt Date: 20131215
  Transmission Date: 20140711
  Serious: Yes (Life-Threatening, Hospitalization, Other)
  Sender: FDA-Public Use
  Company Number: US-MERCK-1311USA007181

PATIENT
  Age: 53 Year
  Sex: Female

DRUGS (13)
  1. SAPHRIS [Suspect]
     Dosage: 5 MG, BID
     Route: 048
     Dates: start: 20131030, end: 20131106
  2. SAPHRIS [Suspect]
     Dosage: 10 MG, QD
     Route: 048
     Dates: start: 20131107, end: 20131112
  3. BUSPAR [Concomitant]
  4. PROZAC [Concomitant]
  5. MAGNESIUM OXIDE [Concomitant]
  6. REQUIP [Concomitant]
  7. POTASSIUM CHLORIDE - USP [Concomitant]
  8. KLONOPIN [Concomitant]
  9. LOPRESSOR [Concomitant]
  10. MICRONASE [Concomitant]
  11. SEROQUEL [Concomitant]
  12. PRILOSEC [Concomitant]
     Route: 048
  13. XANAX [Concomitant]

REACTIONS (3)
  - Renal failure [Unknown]
  - Incorrect route of drug administration [Unknown]
  - Inappropriate schedule of drug administration [Unknown]
